FAERS Safety Report 10027017 (Version 4)
Quarter: 2015Q1

REPORT INFORMATION
  Report Type: Spontaneous
  Country: DK (occurrence: DK)
  Receive Date: 20140321
  Receipt Date: 20150305
  Transmission Date: 20150720
  Serious: Yes (Life-Threatening, Hospitalization)
  Sender: FDA-Public Use
  Company Number: DK-SA-2014SA032248

PATIENT
  Age: 60 Year
  Sex: Female

DRUGS (4)
  1. PANTHENOL/RETINOL/THIAMINE HYDROCHLORIDE/ASCORBIC ACID/ERGOCALCIFEROL/FOLIC ACID/RIBOFLAVIN/NICOTINA [Concomitant]
     Indication: VITAMIN SUPPLEMENTATION
  2. FERRO DURETTER [Concomitant]
     Indication: MINERAL SUPPLEMENTATION
  3. AUBAGIO [Suspect]
     Active Substance: TERIFLUNOMIDE
     Indication: MULTIPLE SCLEROSIS
     Route: 048
     Dates: start: 20140123, end: 20140228
  4. TRIMOPAN [Concomitant]
     Indication: PROPHYLAXIS URINARY TRACT INFECTION

REACTIONS (1)
  - Status epilepticus [Recovered/Resolved]
